FAERS Safety Report 4478616-6 (Version None)
Quarter: 2004Q4

REPORT INFORMATION
  Report Type: 
  Country: None (occurrence: None)
  Receive Date: 20041019
  Receipt Date: 20041008
  Transmission Date: 20050328
  Serious: Yes (Hospitalization)
  Sender: FDA-Public Use
  Company Number: 200413822FR

PATIENT
  Age: 77 Year
  Sex: Female

DRUGS (5)
  1. LASILIX 40 MG [Suspect]
     Route: 048
  2. ALDACTONE [Concomitant]
     Route: 048
  3. MOPRAL [Concomitant]
     Route: 048
  4. MS CONTIN [Concomitant]
     Route: 048
  5. FORLAX [Concomitant]
     Route: 048

REACTIONS (5)
  - AMMONIA INCREASED [None]
  - CONDITION AGGRAVATED [None]
  - ENCEPHALOPATHY [None]
  - HEPATIC ATROPHY [None]
  - HEPATIC NEOPLASM [None]
